FAERS Safety Report 4824421-8 (Version None)
Quarter: 2005Q4

REPORT INFORMATION
  Report Type: 
  Country: None (occurrence: None)
  Receive Date: 20051108
  Receipt Date: 20051026
  Transmission Date: 20060501
  Serious: Yes (Hospitalization)
  Sender: FDA-Public Use
  Company Number: 2005BI019748

PATIENT
  Age: 37 Year
  Sex: Female
  Weight: 57.6068 kg

DRUGS (7)
  1. AVONEX [Suspect]
     Indication: MULTIPLE SCLEROSIS
     Dosage: 30 UG;QW;IM
     Route: 030
     Dates: end: 20040101
  2. AVONEX [Suspect]
     Indication: MULTIPLE SCLEROSIS
     Dosage: IM
     Route: 030
     Dates: start: 20040101
  3. PROVIGIL [Concomitant]
  4. VITAMINS NOS [Concomitant]
  5. CALCIUM GLUCONATE [Concomitant]
  6. PREDNISONE [Concomitant]
  7. CELLCEPT [Concomitant]

REACTIONS (13)
  - AMNESIA [None]
  - CLAVICLE FRACTURE [None]
  - IMMOBILE [None]
  - MIGRAINE [None]
  - NYSTAGMUS [None]
  - PAIN [None]
  - PELVIC FRACTURE [None]
  - PNEUMOTHORAX [None]
  - RIB FRACTURE [None]
  - ROAD TRAFFIC ACCIDENT [None]
  - SCAPULA FRACTURE [None]
  - SUBDURAL HAEMATOMA [None]
  - VISUAL FIELD DEFECT [None]
